FAERS Safety Report 8535501-8 (Version None)
Quarter: 2012Q3

REPORT INFORMATION
  Report Type: 
  Country: None (occurrence: None)
  Receive Date: 20120718
  Receipt Date: 20120718
  Transmission Date: 20120928
  Serious: Yes (Hospitalization)
  Sender: FDA-Public Use
  Company Number: None

PATIENT
  Age: 65 Year
  Sex: Male

DRUGS (16)
  1. FEXOFENADINE [Concomitant]
  2. SIMVASTATIN [Concomitant]
  3. AMLODIPINE [Concomitant]
  4. ALFALFA [Concomitant]
  5. TRAZODONE HYDROCHLORIDE [Concomitant]
  6. CYANOCOBALAMIN [Concomitant]
  7. FISH OIL [Concomitant]
  8. CALCIUM CARBONATE [Concomitant]
  9. TRAVATAN [Concomitant]
  10. AMOXICILLIN [Suspect]
     Indication: ABSCESS ORAL
     Dosage: 500 MG Q6HRS PO
     Route: 048
  11. THIAMINE [Concomitant]
  12. NAPROSIN [Concomitant]
  13. COSOPT [Concomitant]
  14. CEPHALEXIN [Suspect]
     Indication: ABSCESS ORAL
     Dosage: 250MG BID PO
     Route: 048
  15. OMEPRAZOLE [Concomitant]
  16. BRIMONIDINE TARTRATE [Concomitant]

REACTIONS (3)
  - PYREXIA [None]
  - RASH ERYTHEMATOUS [None]
  - MYALGIA [None]
